FAERS Safety Report 13574449 (Version 1)
Quarter: 2017Q2

REPORT INFORMATION
  Report Type: Spontaneous
  Country: KR (occurrence: KR)
  Receive Date: 20170523
  Receipt Date: 20170523
  Transmission Date: 20170830
  Serious: Yes (Hospitalization)
  Sender: FDA-Public Use
  Company Number: KR-INGENUS PHARMACEUTICALS NJ, LLC-ING201705-000266

PATIENT
  Age: 48 Year
  Sex: Male

DRUGS (4)
  1. CARISOPRODOL AND ASPIRIN [Suspect]
     Active Substance: ASPIRIN\CARISOPRODOL
  2. CLOPIDOGREL [Suspect]
     Active Substance: CLOPIDOGREL BISULFATE
  3. PLETAAL [Suspect]
     Active Substance: CILOSTAZOL
  4. ENOXAPARIN [Suspect]
     Active Substance: ENOXAPARIN

REACTIONS (3)
  - Retroperitoneal haematoma [Recovered/Resolved]
  - Arterial rupture [Unknown]
  - Haemorrhage [Unknown]
